FAERS Safety Report 9170251 (Version 1)
Quarter: 2013Q1

REPORT INFORMATION
  Report Type: Spontaneous
  Country: US (occurrence: None)
  Receive Date: 20130307
  Receipt Date: 20130307
  Transmission Date: 20140127
  Serious: Yes (Hospitalization)
  Sender: FDA-Public Use
  Company Number: SYM-2013-01298

PATIENT
  Age: 38 Year
  Sex: Male

DRUGS (1)
  1. BUPROPION [Suspect]
     Indication: PRODUCT USED FOR UNKNOWN INDICATION
     Route: 055

REACTIONS (6)
  - Convulsion [None]
  - Drug abuse [None]
  - Overdose [None]
  - Incorrect route of drug administration [None]
  - Aspartate aminotransferase increased [None]
  - Alanine aminotransferase increased [None]
